FAERS Safety Report 24125038 (Version 2)
Quarter: 2024Q3

REPORT INFORMATION
  Report Type: Spontaneous
  Country: US (occurrence: US)
  Receive Date: 20240723
  Receipt Date: 20240809
  Transmission Date: 20241016
  Serious: Yes (Other)
  Sender: LEO PHARM
  Company Number: US-LEO Pharma-372121

PATIENT
  Age: 68 Year
  Sex: Male

DRUGS (1)
  1. ADBRY [Suspect]
     Active Substance: TRALOKINUMAB-LDRM
     Indication: Dermatitis atopic
     Route: 058
     Dates: start: 20220610, end: 20231219

REACTIONS (1)
  - Cerebrovascular accident [Unknown]
